FAERS Safety Report 6541929-8 (Version None)
Quarter: 2010Q1

REPORT INFORMATION
  Report Type: 
  Country: None (occurrence: None)
  Receive Date: 20100119
  Receipt Date: 20100111
  Transmission Date: 20100710
  Serious: Yes (Other)
  Sender: FDA-Public Use
  Company Number: US-PFIZER INC-2009295057

PATIENT
  Sex: Female
  Weight: 61 kg

DRUGS (8)
  1. ESTRING [Suspect]
     Indication: ATROPHIC VULVOVAGINITIS
     Dosage: 2 MG, UNK
     Route: 067
     Dates: start: 20050101
  2. PREMPRO [Suspect]
     Indication: MENOPAUSAL SYMPTOMS
     Dosage: 0.45MG/1.5MG
     Route: 048
     Dates: start: 20090101
  3. LIPITOR [Concomitant]
  4. NORVASC [Concomitant]
  5. EFFEXOR [Concomitant]
  6. RESTORIL [Concomitant]
  7. ATIVAN [Concomitant]
  8. SYNTHROID [Concomitant]

REACTIONS (6)
  - AXILLARY MASS [None]
  - BREAST MASS [None]
  - METRORRHAGIA [None]
  - OVARIAN CYST [None]
  - SURGERY [None]
  - UTERINE MASS [None]
